FAERS Safety Report 16780478 (Version 3)
Quarter: 2019Q4

REPORT INFORMATION
  Report Type: Spontaneous
  Country: FR (occurrence: FR)
  Receive Date: 20190906
  Receipt Date: 20191217
  Transmission Date: 20200122
  Serious: Yes (Disabling, Other)
  Sender: FDA-Public Use
  Company Number: FR-MYLANLABS-2019M1083103

PATIENT
  Age: 32 Year
  Sex: Male
  Weight: 90 kg

DRUGS (1)
  1. METHOTREXATE. [Suspect]
     Active Substance: METHOTREXATE
     Indication: PARAPSORIASIS
     Dosage: AVERAGE WEEKLY DOSE OF 15 MG (0.17 MG/KG/WEEK)
     Route: 048
     Dates: start: 201603, end: 20181015

REACTIONS (4)
  - Hyporeflexia [Recovered/Resolved]
  - Neurotoxicity [Recovered/Resolved]
  - Vertigo [Recovered/Resolved]
  - Product use in unapproved indication [Unknown]

NARRATIVE: CASE EVENT DATE: 201603
